FAERS Safety Report 9698241 (Version 1)
Quarter: 2013Q4

REPORT INFORMATION
  Report Type: Spontaneous
  Country: US (occurrence: None)
  Receive Date: 20131115
  Receipt Date: 20131115
  Transmission Date: 20140711
  Serious: Yes (Other)
  Sender: FDA-Public Use
  Company Number: 2013SA116172

PATIENT
  Sex: Male

DRUGS (1)
  1. GOLD BOND POWDER SPRAY FRESH [Suspect]

REACTIONS (4)
  - Application site reaction [None]
  - Application site rash [None]
  - Application site urticaria [None]
  - Chemical injury [None]
